FAERS Safety Report 13355217 (Version 2)
Quarter: 2019Q1

REPORT INFORMATION
  Report Type: Spontaneous
  Country: US (occurrence: US)
  Receive Date: 20170321
  Receipt Date: 20190329
  Transmission Date: 20190417
  Serious: No
  Sender: FDA-Public Use
  Company Number: US-BAUSCH-BL-2016-009270

PATIENT
  Age: 37 Year
  Sex: Female
  Weight: 63.56 kg

DRUGS (1)
  1. RETIN-A [Suspect]
     Active Substance: TRETINOIN
     Indication: ACNE
     Dosage: 1 TIME ^ALL OVER FACE, AND ON PIMPLES^
     Route: 061
     Dates: start: 2012, end: 201604

REACTIONS (4)
  - Eye pruritus [Recovering/Resolving]
  - Product quality issue [Unknown]
  - Product odour abnormal [Unknown]
  - Eye irritation [Unknown]

NARRATIVE: CASE EVENT DATE: 201604
